FAERS Safety Report 13469712 (Version 1)
Quarter: 2017Q2

REPORT INFORMATION
  Report Type: Spontaneous
  Country: US (occurrence: US)
  Receive Date: 20170422
  Receipt Date: 20170422
  Transmission Date: 20170830
  Serious: No
  Sender: FDA-Public Use
  Company Number: US-JNJFOC-20170422478

PATIENT
  Age: 62 Year
  Sex: Female
  Weight: 59.88 kg

DRUGS (2)
  1. MENS ROGAINE EXTRA STRENGTH [Suspect]
     Active Substance: MINOXIDIL
     Route: 061
  2. MENS ROGAINE EXTRA STRENGTH [Suspect]
     Active Substance: MINOXIDIL
     Indication: ALOPECIA
     Route: 061

REACTIONS (4)
  - Off label use [Recovered/Resolved]
  - Product use issue [Recovered/Resolved]
  - Hair texture abnormal [Recovered/Resolved]
  - Pruritus [Recovered/Resolved]
